FAERS Safety Report 8221271-X (Version None)
Quarter: 2012Q1

REPORT INFORMATION
  Report Type: 
  Country: None (occurrence: None)
  Receive Date: 20120320
  Receipt Date: 20120315
  Transmission Date: 20120608
  Serious: Yes (Hospitalization, Other)
  Sender: FDA-Public Use
  Company Number: US-BAYER-2012-019984

PATIENT
  Age: 62 Year
  Sex: Male

DRUGS (6)
  1. ANTIEMETICS AND ANTINAUSEANTS [Concomitant]
     Indication: PROPHYLAXIS OF NAUSEA AND VOMITING
  2. ALPRAZOLAM [Concomitant]
  3. CRESTOR [Concomitant]
  4. NEXAVAR [Suspect]
     Indication: THYROID CANCER
     Dosage: 400 MG, BID
     Dates: start: 20120220, end: 20120229
  5. OXYCODONE HCL [Concomitant]
     Dosage: UNK
     Route: 048
  6. SYNTHROID [Concomitant]
     Dosage: 175 MG, QD

REACTIONS (6)
  - PAIN IN EXTREMITY [None]
  - PYREXIA [None]
  - ABASIA [None]
  - DECREASED APPETITE [None]
  - ERYTHEMA [None]
  - PALMAR-PLANTAR ERYTHRODYSAESTHESIA SYNDROME [None]
